FAERS Safety Report 9725686 (Version 1)
Quarter: 2013Q4

REPORT INFORMATION
  Report Type: Spontaneous
  Country: US (occurrence: None)
  Receive Date: 20131202
  Receipt Date: 20131202
  Transmission Date: 20140711
  Serious: Yes (Other)
  Sender: FDA-Public Use
  Company Number: None

PATIENT
  Age: 70 Year
  Sex: Male
  Weight: 77.11 kg

DRUGS (13)
  1. BYDUREON [Suspect]
     Indication: DIABETES MELLITUS
     Dosage: 2MG/VIAL?2MG?1-WEEKLY?INJECTION
     Dates: start: 20130617, end: 20130906
  2. DIGOXIN [Concomitant]
  3. SOTALOL [Concomitant]
  4. NEXIUM [Concomitant]
  5. LISINOPRIL [Concomitant]
  6. LIPITOR [Concomitant]
  7. WARTIN [Concomitant]
  8. ANDRO GEL [Concomitant]
  9. ACETAMINOPHEN [Concomitant]
  10. TYLENOL [Concomitant]
  11. ASPRIN [Concomitant]
  12. VIT.C. [Concomitant]
  13. VIT D3 [Concomitant]

REACTIONS (1)
  - Injection site nodule [None]
